FAERS Safety Report 8333678-0 (Version None)
Quarter: 2012Q2

REPORT INFORMATION
  Report Type: 
  Country: None (occurrence: None)
  Receive Date: 20120503
  Receipt Date: 20120502
  Transmission Date: 20120825
  Serious: Yes (Death, Other)
  Sender: FDA-Public Use
  Company Number: PHHY2012GB004763

PATIENT
  Age: 39 Year
  Sex: Male
  Weight: 76 kg

DRUGS (4)
  1. OXALIPLATIN [Suspect]
     Indication: ADENOCARCINOMA
     Dosage: UNK
     Route: 048
     Dates: start: 20110809
  2. CAPECITABINE [Suspect]
     Indication: ADENOCARCINOMA
     Dosage: UNK
     Route: 042
     Dates: start: 20110809
  3. STEROIDS NOS [Concomitant]
  4. BECLOMETHASONE DIPROPIONATE [Concomitant]

REACTIONS (8)
  - ARRHYTHMIA [None]
  - LOSS OF CONSCIOUSNESS [None]
  - SYNCOPE [None]
  - FEELING ABNORMAL [None]
  - PALPITATIONS [None]
  - LEFT VENTRICULAR FAILURE [None]
  - PULMONARY OEDEMA [None]
  - CIRCULATORY COLLAPSE [None]
